FAERS Safety Report 9842832 (Version 1)
Quarter: 2014Q1

REPORT INFORMATION
  Report Type: Spontaneous
  Country: DK (occurrence: NL)
  Receive Date: 20140124
  Receipt Date: 20140124
  Transmission Date: 20141002
  Serious: Yes (Other)
  Sender: FDA-Public Use
  Company Number: NL-FRI-1000053034

PATIENT
  Age: 46 Year
  Sex: Female

DRUGS (3)
  1. CITALOPRAM [Suspect]
     Dosage: 40 MG
     Route: 048
     Dates: start: 201308
  2. MIRTAZAPINE [Interacting]
     Dosage: 15 MG
     Route: 048
     Dates: start: 20140102
  3. ADALAT OROS [Interacting]
     Dosage: 30 MG
     Route: 048
     Dates: start: 2012

REACTIONS (2)
  - Urinary retention [Recovering/Resolving]
  - Drug interaction [Recovering/Resolving]
